FAERS Safety Report 22353944 (Version 3)
Quarter: 2023Q4

REPORT INFORMATION
  Report Type: Spontaneous
  Country: CN (occurrence: CN)
  Receive Date: 20230523
  Receipt Date: 20231023
  Transmission Date: 20240110
  Serious: Yes (Other)
  Sender: FDA-Public Use
  Company Number: CN-GLAXOSMITHKLINE-CN2023APC070892

PATIENT

DRUGS (1)
  1. VENTOLIN [Suspect]
     Active Substance: ALBUTEROL SULFATE
     Indication: Asthma
     Dosage: UNK
     Route: 055

REACTIONS (8)
  - Near death experience [Unknown]
  - Drug dependence [Unknown]
  - Asthma [Unknown]
  - Skin discolouration [Unknown]
  - Prescription drug used without a prescription [Unknown]
  - Product dose omission issue [Unknown]
  - Intentional overdose [Unknown]
  - Product availability issue [Unknown]
